FAERS Safety Report 5941698-6 (Version None)
Quarter: 2008Q4

REPORT INFORMATION
  Report Type: 
  Country: None (occurrence: None)
  Receive Date: 20081105
  Receipt Date: 20081027
  Transmission Date: 20090506
  Serious: Yes (Other)
  Sender: FDA-Public Use
  Company Number: DE-BRISTOL-MYERS SQUIBB COMPANY-14393797

PATIENT

DRUGS (1)
  1. EFAVIRENZ [Suspect]
     Indication: ANTIRETROVIRAL THERAPY

REACTIONS (1)
  - DRUG RESISTANCE [None]
